FAERS Safety Report 24544342 (Version 2)
Quarter: 2025Q1

REPORT INFORMATION
  Report Type: Spontaneous
  Country: ES (occurrence: ES)
  Receive Date: 20241024
  Receipt Date: 20250210
  Transmission Date: 20250409
  Serious: Yes (Other)
  Sender: PFIZER
  Company Number: ES-ROCHE-3005997

PATIENT
  Age: 60 Year
  Sex: Male
  Weight: 84.7 kg

DRUGS (24)
  1. CARBOPLATIN [Suspect]
     Active Substance: CARBOPLATIN
     Indication: Non-small cell lung cancer metastatic
     Dosage: 702 MG, EVERY 3 WEEKS
     Route: 042
     Dates: start: 20210712
  2. CARBOPLATIN [Suspect]
     Active Substance: CARBOPLATIN
     Route: 042
  3. PEMETREXED [Suspect]
     Active Substance: PEMETREXED
     Indication: Non-small cell lung cancer metastatic
     Dosage: 958 MG, EVERY 3 WEEKS
     Route: 042
     Dates: start: 20210712
  4. PEMETREXED [Suspect]
     Active Substance: PEMETREXED
     Route: 042
  5. TIRAGOLUMAB [Suspect]
     Active Substance: TIRAGOLUMAB
     Indication: Non-small cell lung cancer metastatic
     Dosage: UNK, EVERY 3 WEEKS
     Route: 042
     Dates: start: 20210712
  6. TIRAGOLUMAB [Suspect]
     Active Substance: TIRAGOLUMAB
     Dosage: UNK, EVERY 3 WEEKS
     Route: 042
     Dates: start: 20211116
  7. ATEZOLIZUMAB [Suspect]
     Active Substance: ATEZOLIZUMAB
     Indication: Non-small cell lung cancer metastatic
     Dosage: UNK, EVERY 3 WEEKS
     Route: 042
     Dates: start: 20210712
  8. PEMBROLIZUMAB [Suspect]
     Active Substance: PEMBROLIZUMAB
     Indication: Non-small cell lung cancer metastatic
     Dosage: UNK, EVERY 3 WEEKS
     Route: 042
     Dates: start: 20210712
  9. PYRIDOXINE HYDROCHLORIDE [Concomitant]
     Active Substance: PYRIDOXINE HYDROCHLORIDE
     Indication: Prophylactic chemotherapy
     Dosage: 300 MG, 1X/DAY
     Route: 048
     Dates: start: 20210707
  10. THIAMINE HYDROCHLORIDE [Concomitant]
     Active Substance: THIAMINE HYDROCHLORIDE
     Indication: Prophylactic chemotherapy
     Dosage: 300 MG, 1X/DAY
     Route: 048
     Dates: start: 20210707
  11. CYANOCOBALAMIN [Concomitant]
     Active Substance: CYANOCOBALAMIN
     Indication: Prophylactic chemotherapy
     Dosage: 1000 MG, MONTHLY
     Route: 030
     Dates: start: 20210707
  12. DEXAMETHASONE [Concomitant]
     Active Substance: DEXAMETHASONE
     Indication: Chemotherapy side effect prophylaxis
     Dosage: 4 MG, EVERY 3 WEEKS
     Route: 048
     Dates: start: 20210711
  13. DEXAMETHASONE [Concomitant]
     Active Substance: DEXAMETHASONE
     Dosage: 8 MG, EVERY 3 WEEKS
     Route: 048
     Dates: start: 20210714
  14. GABAPENTIN [Concomitant]
     Active Substance: GABAPENTIN
     Indication: Pain
     Dosage: 300 MG, 1X/DAY
     Route: 048
     Dates: start: 20210630
  15. GRANISETRON [Concomitant]
     Active Substance: GRANISETRON
     Indication: Chemotherapy side effect prophylaxis
     Dosage: 1 MG, EVERY 3 WEEKS
     Route: 048
     Dates: start: 20210712
  16. HYDROCORTISONE [Concomitant]
     Active Substance: HYDROCORTISONE
     Dosage: 30 MG, 1X/DAY
     Route: 048
     Dates: start: 20230627, end: 20230723
  17. METAMIZOLE [Concomitant]
     Active Substance: METAMIZOLE
     Indication: Pain
     Dosage: 575 MG, 1X/DAY
     Route: 048
     Dates: start: 20210615
  18. METHYLPREDNISOLONE [Concomitant]
     Active Substance: METHYLPREDNISOLONE
     Dosage: 60 MG, 1X/DAY
     Route: 048
     Dates: start: 20230604, end: 20230607
  19. METHYLPREDNISOLONE [Concomitant]
     Active Substance: METHYLPREDNISOLONE
     Dosage: 40 MG, 1X/DAY
     Route: 048
     Dates: start: 20230608, end: 20230710
  20. METHYLPREDNISOLONE [Concomitant]
     Active Substance: METHYLPREDNISOLONE
     Dosage: 120 MG, 1X/DAY
     Route: 048
     Dates: start: 20230627, end: 20230630
  21. METHYLPREDNISOLONE [Concomitant]
     Active Substance: METHYLPREDNISOLONE
     Dosage: 80 MG, 1X/DAY
     Route: 048
     Dates: start: 20230701, end: 20230703
  22. MORPHINE [Concomitant]
     Active Substance: MORPHINE
     Indication: Pain
     Dosage: 40 MG, 1X/DAY
     Route: 048
     Dates: start: 20211025
  23. OMEPRAZOLE [Concomitant]
     Active Substance: OMEPRAZOLE
     Dosage: 40 MG, 1X/DAY
     Route: 048
     Dates: start: 20210610
  24. ZOLICO [FLUCONAZOLE] [Concomitant]
     Route: 048
     Dates: start: 20210707

REACTIONS (2)
  - Hyperthyroidism [Not Recovered/Not Resolved]
  - Off label use [Unknown]

NARRATIVE: CASE EVENT DATE: 20210712
